FAERS Safety Report 9828542 (Version 1)
Quarter: 2014Q1

REPORT INFORMATION
  Report Type: Spontaneous
  Country: IT (occurrence: IT)
  Receive Date: 20140117
  Receipt Date: 20140117
  Transmission Date: 20141002
  Serious: Yes (Hospitalization)
  Sender: FDA-Public Use
  Company Number: IT-TEVA-455770ISR

PATIENT
  Age: 44 Year
  Sex: Male

DRUGS (10)
  1. DICLOFENAC [Suspect]
     Indication: INFLAMMATION
     Route: 048
     Dates: start: 20131122, end: 20131211
  2. PLAVIX - SANOFI PHARMA BRISTOL-MYERS SQUIBB SNC [Suspect]
     Indication: THROMBOSIS PROPHYLAXIS
     Route: 048
     Dates: start: 20110101, end: 20131214
  3. MUSCORIL - MEDIFARM S.R.L. [Suspect]
     Indication: INFLAMMATION
     Route: 030
     Dates: start: 20131122, end: 20131211
  4. TORA-DOL - 30 MG/ML SOLUZIONE INIETTABILE - RECORDATI [Suspect]
     Indication: PAIN
     Route: 030
     Dates: start: 20131210, end: 20131211
  5. BENTELAN - DEFIANTE FARMACEUTICA SA [Suspect]
     Indication: INFLAMMATION
     Route: 030
     Dates: start: 20131122, end: 20131211
  6. AULIN - HELSINN BIREX PHARMACEUTICALS LTD [Suspect]
     Indication: INFLAMMATION
     Route: 048
     Dates: start: 20131201, end: 20131208
  7. UNIPRIL [Concomitant]
     Indication: PRODUCT USED FOR UNKNOWN INDICATION
  8. CRESTOR [Concomitant]
     Indication: PRODUCT USED FOR UNKNOWN INDICATION
  9. COMBISARTAN [Concomitant]
     Indication: PRODUCT USED FOR UNKNOWN INDICATION
  10. CARVEDILOL [Concomitant]
     Indication: PRODUCT USED FOR UNKNOWN INDICATION

REACTIONS (5)
  - Anaemia [Recovered/Resolved]
  - Gastritis erosive [Recovered/Resolved]
  - Melaena [Recovered/Resolved]
  - Rectal haemorrhage [Recovered/Resolved]
  - Erosive duodenitis [Recovered/Resolved]
